FAERS Safety Report 19399504 (Version 1)
Quarter: 2021Q2

REPORT INFORMATION
  Report Type: Report from Study
  Country: GB (occurrence: GB)
  Receive Date: 20210610
  Receipt Date: 20210610
  Transmission Date: 20210717
  Serious: Yes (Hospitalization)
  Sender: FDA-Public Use
  Company Number: GB-IPSEN BIOPHARMACEUTICALS, INC.-2021-14317

PATIENT
  Sex: Male
  Weight: 59 kg

DRUGS (1)
  1. SOMATULINE AUTOGEL [Suspect]
     Active Substance: LANREOTIDE ACETATE
     Indication: NEUROENDOCRINE TUMOUR
     Dosage: 120MG/0.5 ML
     Route: 065

REACTIONS (4)
  - Circulatory collapse [Unknown]
  - Biliary sepsis [Unknown]
  - Asthenia [Unknown]
  - Weight decreased [Unknown]
